FAERS Safety Report 15704811 (Version 1)
Quarter: 2018Q4

REPORT INFORMATION
  Report Type: Spontaneous
  Country: BR (occurrence: BR)
  Receive Date: 20181210
  Receipt Date: 20181210
  Transmission Date: 20190205
  Serious: Yes (Other)
  Sender: FDA-Public Use
  Company Number: BR-PFIZER INC-2018469227

PATIENT
  Age: 94 Year
  Sex: Female

DRUGS (2)
  1. LORAX [Suspect]
     Active Substance: LORAZEPAM
     Indication: SLEEP DISORDER
     Dosage: 1 MG, DAILY (ABOUT 8 YEARS AGO)
  2. LORAX [Suspect]
     Active Substance: LORAZEPAM
     Dosage: 1 MG, DAILY (1 OR 2 YEARS AGO)

REACTIONS (3)
  - Nightmare [Unknown]
  - Dementia Alzheimer^s type [Not Recovered/Not Resolved]
  - Insomnia [Unknown]
